FAERS Safety Report 24778244 (Version 1)
Quarter: 2024Q4

REPORT INFORMATION
  Report Type: Spontaneous
  Country: RO (occurrence: RO)
  Receive Date: 20241226
  Receipt Date: 20241226
  Transmission Date: 20250115
  Serious: Yes (Death)
  Sender: JOHNSON AND JOHNSON
  Company Number: RO-JNJFOC-20241261270

PATIENT
  Sex: Male
  Weight: 80 kg

DRUGS (1)
  1. TECVAYLI [Suspect]
     Active Substance: TECLISTAMAB-CQYV
     Indication: Plasma cell myeloma refractory
     Route: 058

REACTIONS (1)
  - Upper gastrointestinal haemorrhage [Fatal]
